FAERS Safety Report 8943336 (Version 1)
Quarter: 2012Q4

REPORT INFORMATION
  Report Type: 
  Country: TW (occurrence: TW)
  Receive Date: 20121204
  Receipt Date: 20121204
  Transmission Date: 20130627
  Serious: Yes (Hospitalization)
  Sender: FDA-Public Use
  Company Number: TW-AMGEN-TWNSP2012077224

PATIENT
  Age: 75 Year
  Sex: Male

DRUGS (1)
  1. ENBREL [Suspect]
     Indication: RHEUMATOID ARTHRITIS
     Dosage: 1 DF, weekly
     Route: 058
     Dates: start: 20080201, end: 20120928

REACTIONS (3)
  - Rib fracture [Recovering/Resolving]
  - Haemothorax [Recovering/Resolving]
  - Pneumonia [Recovering/Resolving]
